FAERS Safety Report 16391520 (Version 1)
Quarter: 2019Q2

REPORT INFORMATION
  Report Type: Spontaneous
  Country: US (occurrence: US)
  Receive Date: 20190605
  Receipt Date: 20190605
  Transmission Date: 20190711
  Serious: Yes (Hospitalization)
  Sender: FDA-Public Use
  Company Number: US-ROCHE-2330158

PATIENT
  Sex: Male

DRUGS (2)
  1. REMICADE [Concomitant]
     Active Substance: INFLIXIMAB
  2. ACTEMRA [Suspect]
     Active Substance: TOCILIZUMAB
     Indication: RHEUMATOID ARTHRITIS
     Dosage: ACTEMRA 80MG/4ML, 400MG/20ML
     Route: 042
     Dates: start: 20190312

REACTIONS (1)
  - Myocardial infarction [Unknown]
